FAERS Safety Report 15590671 (Version 1)
Quarter: 2020Q3

REPORT INFORMATION
  Report Type: Report from Study
  Country: IN (occurrence: IN)
  Receive Date: 20181106
  Receipt Date: 20181106
  Transmission Date: 20201104
  Serious: Yes (Hospitalization)
  Sender: FDA-Public Use
  Company Number: IN-ASTRAZENECA-2017SE10522

PATIENT
  Age: 20847 Day
  Sex: Male

DRUGS (13)
  1. THYRONORM [Concomitant]
     Active Substance: LEVOTHYROXINE
     Route: 048
     Dates: start: 20170125, end: 20170130
  2. ACECLOFENAC+PARACETAMOL [Concomitant]
     Indication: PAIN
     Route: 048
     Dates: start: 20170119, end: 20170123
  3. MEDI4736 [Suspect]
     Active Substance: DURVALUMAB
     Indication: SQUAMOUS CELL CARCINOMA OF HEAD AND NECK
     Route: 042
     Dates: start: 20170212, end: 20170212
  4. EMESET [Concomitant]
     Active Substance: ONDANSETRON HYDROCHLORIDE
     Indication: PREMEDICATION
  5. TREMELIMUMAB. [Suspect]
     Active Substance: TREMELIMUMAB
     Indication: SQUAMOUS CELL CARCINOMA OF HEAD AND NECK
     Route: 042
     Dates: start: 20170113, end: 20170113
  6. ULTRACET [Concomitant]
     Active Substance: ACETAMINOPHEN\TRAMADOL HYDROCHLORIDE
     Indication: PREMEDICATION
     Route: 048
     Dates: start: 20170125, end: 20170128
  7. TRIPTOMER [Concomitant]
     Indication: PAIN
     Route: 048
     Dates: start: 20170125, end: 20170128
  8. SODIUM LACTATE. [Concomitant]
     Active Substance: SODIUM LACTATE
     Indication: DEHYDRATION
     Route: 042
     Dates: start: 20170125, end: 20170125
  9. HIFENAC [Concomitant]
     Route: 048
     Dates: start: 20170119, end: 20170119
  10. TREMELIMUMAB. [Suspect]
     Active Substance: TREMELIMUMAB
     Indication: SQUAMOUS CELL CARCINOMA OF HEAD AND NECK
     Route: 042
     Dates: start: 20170212, end: 20170212
  11. MEDI4736 [Suspect]
     Active Substance: DURVALUMAB
     Indication: SQUAMOUS CELL CARCINOMA OF HEAD AND NECK
     Route: 042
     Dates: start: 20170113, end: 20170113
  12. PANTOP [Concomitant]
     Active Substance: PANTOPRAZOLE SODIUM
     Indication: PREMEDICATION
     Route: 042
     Dates: start: 20170125, end: 20170125
  13. NORMAL SALINE [Concomitant]
     Active Substance: SODIUM CHLORIDE
     Indication: PREMEDICATION
     Route: 042
     Dates: start: 20170125, end: 20170125

REACTIONS (1)
  - Tumour haemorrhage [Recovered/Resolved]

NARRATIVE: CASE EVENT DATE: 20170128
